FAERS Safety Report 7981259-0 (Version None)
Quarter: 2011Q4

REPORT INFORMATION
  Report Type: 
  Country: None (occurrence: None)
  Receive Date: 20111215
  Receipt Date: 20111212
  Transmission Date: 20120403
  Serious: No
  Sender: FDA-Public Use
  Company Number: US-PFIZER INC-2011225014

PATIENT
  Sex: Female
  Weight: 61 kg

DRUGS (9)
  1. INDERAL [Concomitant]
     Indication: HYPERTENSION
     Dosage: 40 MG, 3X/DAY
  2. WARFARIN SODIUM [Concomitant]
     Indication: CARDIAC DISORDER
  3. LASIX [Concomitant]
     Dosage: 20 MG, UNK
  4. IRON [Concomitant]
     Dosage: 325 MG, 1X/DAY
  5. LEXOTAN [Suspect]
     Indication: CARDIAC FAILURE
     Dosage: UNK
     Dates: start: 20110101, end: 20110101
  6. ALTACE [Suspect]
     Indication: CARDIAC FAILURE
     Dosage: 2.5 MG, DAILY
     Route: 048
     Dates: start: 20110101
  7. WARFARIN SODIUM [Concomitant]
     Indication: ANTICOAGULANT THERAPY
     Dosage: 2 %, DAILY
  8. SPIRONOLACTONE [Concomitant]
     Indication: CARDIAC DISORDER
     Dosage: 25 MG, DAILY
  9. LISINOPRIL [Suspect]
     Indication: CARDIAC FAILURE
     Dosage: UNK
     Dates: start: 20110101, end: 20110101

REACTIONS (8)
  - HEART RATE INCREASED [None]
  - COUGH [None]
  - THROAT IRRITATION [None]
  - FLUID RETENTION [None]
  - OEDEMA PERIPHERAL [None]
  - RHINORRHOEA [None]
  - SNEEZING [None]
  - INSOMNIA [None]
